FAERS Safety Report 25697894 (Version 1)
Quarter: 2025Q3

REPORT INFORMATION
  Report Type: Spontaneous
  Country: EU (occurrence: EU)
  Receive Date: 20250819
  Receipt Date: 20250819
  Transmission Date: 20251021
  Serious: Yes (Hospitalization, Other)
  Sender: EPIC PHARM
  Company Number: EU-EPICPHARMA-IE-2025EPCLIT00923

PATIENT
  Age: 23 Year
  Sex: Male

DRUGS (4)
  1. METHADONE HYDROCHLORIDE [Suspect]
     Active Substance: METHADONE HYDROCHLORIDE
     Indication: Product used for unknown indication
     Route: 065
  2. COCAINE [Suspect]
     Active Substance: COCAINE
     Indication: Product used for unknown indication
     Route: 065
  3. LYSERGIDE [Concomitant]
     Active Substance: LYSERGIDE
     Indication: Product used for unknown indication
     Route: 065
  4. MIDOMAFETAMINE [Concomitant]
     Active Substance: MIDOMAFETAMINE
     Indication: Product used for unknown indication
     Route: 065

REACTIONS (7)
  - Ischaemic cerebral infarction [Unknown]
  - Cerebral hypoperfusion [Unknown]
  - Liver injury [Unknown]
  - Vasoconstriction [Unknown]
  - Substance abuse [Unknown]
  - Loss of consciousness [Recovering/Resolving]
  - Seizure [Unknown]
